FAERS Safety Report 8926866 (Version 3)
Quarter: 2013Q2

REPORT INFORMATION
  Report Type: Report from Study
  Country: US (occurrence: US)
  Receive Date: 20121127
  Receipt Date: 20130508
  Transmission Date: 20140414
  Serious: Yes (Hospitalization)
  Sender: FDA-Public Use
  Company Number: PHHO2012US016811

PATIENT
  Age: 79 Year
  Sex: Male
  Weight: 87.75 kg

DRUGS (6)
  1. ACZ885 [Suspect]
     Indication: GOUTY ARTHRITIS
     Dosage: 150 MG, UNK
     Route: 058
     Dates: start: 20121101
  2. AMBIEN [Concomitant]
     Indication: INSOMNIA
     Dosage: 10 MG, UNK
  3. MECLIZINE [Concomitant]
     Indication: VERTIGO
     Dosage: 25 MG, UNK
     Dates: start: 200502
  4. DIOVAN [Concomitant]
     Indication: HYPERTENSION
     Dosage: 160 G, UNK
  5. LOPRESSOR [Concomitant]
     Indication: HYPERTENSION
     Dosage: 100 MG, UNK
  6. SYNTHROID [Concomitant]
     Indication: HYPOTHYROIDISM
     Dosage: 50 MG, UNK
     Dates: start: 201208

REACTIONS (1)
  - Colon cancer [Recovered/Resolved]
